FAERS Safety Report 7553560 (Version 6)
Quarter: 2013Q1

REPORT INFORMATION
  Report Type: Spontaneous
  Country: JP (occurrence: JP)
  Receive Date: 20100816
  Receipt Date: 20130102
  Transmission Date: 20140127
  Serious: Yes (Life-Threatening, Hospitalization)
  Sender: FDA-Public Use
  Company Number: JP-009507513-2010SP043549

PATIENT
  Age: 49 Year
  Sex: Female

DRUGS (8)
  1. TEMODAL [Suspect]
     Indication: ANAPLASTIC ASTROCYTOMA
     Dosage: 75 MG/M2, QD
     Route: 048
     Dates: start: 20100324, end: 20100504
  2. TEMODAL [Suspect]
     Indication: ANAPLASTIC ASTROCYTOMA
  3. THERAPEUTIC RADIOPHARMACEUTICAL (UNSPECIFIED) [Concomitant]
  4. EXCEGRAN [Concomitant]
     Indication: CONVULSION PROPHYLAXIS
     Dosage: 100 MG, BID
     Route: 048
     Dates: start: 20100301
  5. LOXOPROFEN [Concomitant]
     Indication: HEADACHE
     Dosage: 60 MG, BID
     Route: 048
     Dates: start: 20100301, end: 20100616
  6. MUCOSTA [Concomitant]
     Indication: PROPHYLAXIS
     Dosage: 100 MG, BID
     Route: 048
     Dates: start: 20100301, end: 20100616
  7. BAKTAR [Concomitant]
     Indication: ANTIFUNGAL PROPHYLAXIS
     Dosage: 2G TWICE PER DAY AND 2 TIMES PER WEEK
     Route: 048
     Dates: start: 20100327, end: 20100616
  8. BAKTAR [Concomitant]
     Indication: ANTIFUNGAL PROPHYLAXIS

REACTIONS (4)
  - Hepatitis B [Recovering/Resolving]
  - White blood cell count decreased [Unknown]
  - Neutrophil count decreased [Unknown]
  - Lymphocyte count decreased [Unknown]
